FAERS Safety Report 6623450-1 (Version None)
Quarter: 2010Q1

REPORT INFORMATION
  Report Type: 
  Country: None (occurrence: None)
  Receive Date: 20100310
  Receipt Date: 20100309
  Transmission Date: 20100710
  Serious: Yes (Death, Other)
  Sender: FDA-Public Use
  Company Number: US-ROXANE LABORATORIES, INC.-2010-RO-00190RO

PATIENT
  Sex: Male

DRUGS (4)
  1. METHADONE HYDROCHLORIDE [Suspect]
  2. DIAZEPAM [Suspect]
  3. COCAINE [Suspect]
  4. FENTANYL [Suspect]
     Route: 062

REACTIONS (3)
  - DRUG ABUSE [None]
  - DRUG TOXICITY [None]
  - INTENTIONAL DRUG MISUSE [None]
